FAERS Safety Report 17196969 (Version 1)
Quarter: 2019Q4

REPORT INFORMATION
  Report Type: Spontaneous
  Country: US (occurrence: US)
  Receive Date: 20191224
  Receipt Date: 20191224
  Transmission Date: 20200122
  Serious: No
  Sender: FDA-Public Use
  Company Number: US-GLENMARK PHARMACEUTICALS-2019GMK041626

PATIENT

DRUGS (2)
  1. CICLOPIROX OLAMINE CREAM USP, 0.77% [Suspect]
     Active Substance: CICLOPIROX OLAMINE
     Indication: RASH
     Dosage: UNK, BID
     Route: 061
     Dates: start: 20190530
  2. LOSARTAN. [Concomitant]
     Active Substance: LOSARTAN
     Indication: HYPERTENSION
     Dosage: UNK, OD
     Route: 048

REACTIONS (2)
  - Application site pruritus [Recovering/Resolving]
  - Product primary packaging issue [Unknown]

NARRATIVE: CASE EVENT DATE: 20190530
